FAERS Safety Report 5509196-1 (Version None)
Quarter: 2007Q4

REPORT INFORMATION
  Report Type: 
  Country: None (occurrence: None)
  Receive Date: 20071031
  Receipt Date: 20070627
  Transmission Date: 20080405
  Serious: No
  Sender: FDA-Public Use
  Company Number: 2007PV033071

PATIENT
  Age: 40 Year
  Sex: Female
  Weight: 81.6475 kg

DRUGS (7)
  1. SYMLIN [Suspect]
     Indication: TYPE 1 DIABETES MELLITUS
     Dosage: 120 MCG;TID;SC  90 MCG;SC   60 MCG;SC   30 MCG;SC  15 MCG;SC
     Route: 058
     Dates: start: 20070101, end: 20070101
  2. SYMLIN [Suspect]
     Indication: TYPE 1 DIABETES MELLITUS
     Dosage: 120 MCG;TID;SC  90 MCG;SC   60 MCG;SC   30 MCG;SC  15 MCG;SC
     Route: 058
     Dates: start: 20070101, end: 20070101
  3. SYMLIN [Suspect]
     Indication: TYPE 1 DIABETES MELLITUS
     Dosage: 120 MCG;TID;SC  90 MCG;SC   60 MCG;SC   30 MCG;SC  15 MCG;SC
     Route: 058
     Dates: start: 20070101, end: 20070101
  4. SYMLIN [Suspect]
     Indication: TYPE 1 DIABETES MELLITUS
     Dosage: 120 MCG;TID;SC  90 MCG;SC   60 MCG;SC   30 MCG;SC  15 MCG;SC
     Route: 058
     Dates: start: 20070401, end: 20070101
  5. SYMLIN [Suspect]
     Indication: TYPE 1 DIABETES MELLITUS
     Dosage: 120 MCG;TID;SC  90 MCG;SC   60 MCG;SC   30 MCG;SC  15 MCG;SC
     Route: 058
     Dates: start: 20070101, end: 20070601
  6. NOVOLOG [Concomitant]
  7. LANTUS [Concomitant]

REACTIONS (4)
  - DECREASED APPETITE [None]
  - MALAISE [None]
  - NAUSEA [None]
  - VOMITING [None]
